FAERS Safety Report 9100387 (Version 2)
Quarter: 2013Q1

REPORT INFORMATION
  Report Type: Spontaneous
  Country: JP (occurrence: JP)
  Receive Date: 20130215
  Receipt Date: 20130219
  Transmission Date: 20140127
  Serious: Yes (Other)
  Sender: FDA-Public Use
  Company Number: JP-JNJFOC-20130204629

PATIENT
  Age: 8 Decade
  Sex: Male

DRUGS (4)
  1. RISPERDAL [Suspect]
     Indication: PRODUCT USED FOR UNKNOWN INDICATION
     Route: 048
  2. REMINYL [Suspect]
     Indication: PRODUCT USED FOR UNKNOWN INDICATION
     Route: 048
  3. TRADJENTA [Concomitant]
     Indication: DIABETES MELLITUS
     Route: 048
  4. MEMANTINE HYDROCHLORIDE [Concomitant]
     Indication: GLYCOSURIA
     Route: 048

REACTIONS (1)
  - Parkinsonism [Unknown]
